FAERS Safety Report 18001523 (Version 2)
Quarter: 2020Q3

REPORT INFORMATION
  Report Type: Spontaneous
  Country: GB (occurrence: GB)
  Receive Date: 20200709
  Receipt Date: 20200717
  Transmission Date: 20201103
  Serious: Yes (Death)
  Sender: FDA-Public Use
  Company Number: NVSC2020GB190924

PATIENT
  Age: 52 Year
  Sex: Male

DRUGS (10)
  1. OLANZAPINE. [Suspect]
     Active Substance: OLANZAPINE
     Indication: MENTAL DISORDER
     Dosage: 2 DF, QD
     Route: 065
  2. VENTOLIN [Concomitant]
     Active Substance: ALBUTEROL SULFATE
     Indication: WHEEZING
     Dosage: 100 UG, 1?2 PUFFS FOUR HOURLY WHEN REQUIRED, MAXIMUM OF 8 PUFFS IN 24 HOURS
     Route: 065
  3. CODEINE PHOSPHATE [Suspect]
     Active Substance: CODEINE PHOSPHATE
     Indication: ANALGESIC THERAPY
     Dosage: 90 MG, QD
     Route: 048
     Dates: start: 20180102, end: 20200118
  4. MELATONIN [Concomitant]
     Active Substance: MELATONIN
     Indication: PRODUCT USED FOR UNKNOWN INDICATION
     Dosage: UNK
     Route: 065
  5. OMEPRAZOLE. [Concomitant]
     Active Substance: OMEPRAZOLE
     Indication: PRODUCT USED FOR UNKNOWN INDICATION
     Dosage: 20 MG, QD
     Route: 065
  6. AIRFLUSAL FORSPIRO [Concomitant]
     Active Substance: FLUTICASONE PROPIONATE\SALMETEROL XINAFOATE
     Indication: PRODUCT USED FOR UNKNOWN INDICATION
     Dosage: 4 DF, QD, 2 PUFFS, 25MCG/DOSE/250MCG/DOSE
     Route: 065
  7. MELATONIN [Concomitant]
     Active Substance: MELATONIN
     Dosage: 2 MG, QD, NIGHT
     Route: 065
  8. SODIUM VALPROATE [Concomitant]
     Active Substance: VALPROATE SODIUM
     Indication: PRODUCT USED FOR UNKNOWN INDICATION
     Dosage: 500 MG, QD
     Route: 065
  9. CLOBAZAM. [Concomitant]
     Active Substance: CLOBAZAM
     Dosage: 10 MG, QD, NIGHT
     Route: 065
  10. CLOBAZAM. [Concomitant]
     Active Substance: CLOBAZAM
     Indication: PRODUCT USED FOR UNKNOWN INDICATION
     Dosage: UNK
     Route: 065

REACTIONS (10)
  - Somnolence [Fatal]
  - Memory impairment [Fatal]
  - Toxicity to various agents [Fatal]
  - Hypersomnia [Fatal]
  - Cold sweat [Fatal]
  - Dysarthria [Fatal]
  - Emotional disorder [Fatal]
  - Dyspnoea [Fatal]
  - Cyanosis [Fatal]
  - Drug dependence [Fatal]
